FAERS Safety Report 20763764 (Version 10)
Quarter: 2023Q4

REPORT INFORMATION
  Report Type: Report from Study
  Country: MX (occurrence: MX)
  Receive Date: 20220428
  Receipt Date: 20231103
  Transmission Date: 20240109
  Serious: Yes (Other)
  Sender: FDA-Public Use
  Company Number: MX-NOVARTISPH-NVSC2021MX233720

PATIENT
  Age: 43 Year
  Sex: Male

DRUGS (3)
  1. TASIGNA [Suspect]
     Active Substance: NILOTINIB
     Indication: Chronic myeloid leukaemia
     Dosage: 400 MG, Q12H
     Route: 048
     Dates: start: 20170102
  2. TASIGNA [Suspect]
     Active Substance: NILOTINIB
     Dosage: UNK
     Route: 048
  3. INFLUENZA VIRUS VACCINE [Suspect]
     Active Substance: INFLUENZA VIRUS VACCINE
     Indication: Product used for unknown indication
     Dosage: UNK
     Route: 065

REACTIONS (46)
  - Platelet count increased [Unknown]
  - Chronic myeloid leukaemia recurrent [Recovering/Resolving]
  - Asphyxia [Recovering/Resolving]
  - Eating disorder [Unknown]
  - Hypertension [Unknown]
  - Pain [Recovering/Resolving]
  - Burning sensation [Not Recovered/Not Resolved]
  - Dizziness [Recovering/Resolving]
  - Weight increased [Unknown]
  - Feeling of despair [Unknown]
  - Somnolence [Unknown]
  - Pain in jaw [Unknown]
  - Teething [Unknown]
  - Anger [Unknown]
  - Mastication disorder [Unknown]
  - Dysstasia [Unknown]
  - Sitting disability [Unknown]
  - Bone disorder [Unknown]
  - Gait disturbance [Unknown]
  - Influenza [Unknown]
  - Cough [Unknown]
  - Suffocation feeling [Recovering/Resolving]
  - Nasopharyngitis [Unknown]
  - Rhinorrhoea [Unknown]
  - Pallor [Unknown]
  - Discomfort [Unknown]
  - Lung disorder [Unknown]
  - Feeling abnormal [Unknown]
  - Oral pain [Unknown]
  - Anxiety [Unknown]
  - Malaise [Unknown]
  - Insomnia [Unknown]
  - Pyrexia [Recovering/Resolving]
  - Chest pain [Unknown]
  - Tremor [Unknown]
  - Bone pain [Unknown]
  - Abdominal pain upper [Unknown]
  - Weight decreased [Unknown]
  - Rash [Unknown]
  - Chest discomfort [Unknown]
  - Depression [Unknown]
  - Illness [Unknown]
  - Platelet count decreased [Unknown]
  - Vision blurred [Unknown]
  - Diplopia [Unknown]
  - Product dose omission issue [Unknown]

NARRATIVE: CASE EVENT DATE: 20210901
